FAERS Safety Report 6131985-3 (Version None)
Quarter: 2009Q1

REPORT INFORMATION
  Report Type: 
  Country: None (occurrence: None)
  Receive Date: 20090325
  Receipt Date: 20090313
  Transmission Date: 20090719
  Serious: Yes (Other)
  Sender: FDA-Public Use
  Company Number: US-SANOFI-SYNTHELABO-A03200901144

PATIENT
  Age: 36 Year
  Sex: Male

DRUGS (2)
  1. LEXAPRO [Concomitant]
     Indication: DEPRESSION
     Dosage: ONE TABLET THAT EVENING
     Route: 065
     Dates: start: 20081119
  2. AMBIEN [Suspect]
     Indication: SLEEP DISORDER
     Dosage: ONE TABLET THAT EVENING
     Route: 048
     Dates: start: 20081119

REACTIONS (2)
  - DELUSION [None]
  - HOMICIDE [None]
